FAERS Safety Report 15883299 (Version 1)
Quarter: 2019Q1

REPORT INFORMATION
  Report Type: Spontaneous
  Country: DE (occurrence: DE)
  Receive Date: 20190129
  Receipt Date: 20190129
  Transmission Date: 20190417
  Serious: Yes (Life-Threatening, Hospitalization)
  Sender: FDA-Public Use
  Company Number: DE-ACCORD-103683

PATIENT
  Age: 78 Year
  Sex: Female
  Weight: 65.5 kg

DRUGS (16)
  1. PREDNISOLONE. [Concomitant]
     Active Substance: PREDNISOLONE
     Dosage: 5 MG, 1-0-0, TABLETS
     Route: 048
  2. SIMVASTATIN. [Suspect]
     Active Substance: SIMVASTATIN
     Indication: PRODUCT USED FOR UNKNOWN INDICATION
     Dosage: 40 MG, 0-0-1, TABLETS
     Route: 048
  3. TILIDINE [Concomitant]
     Active Substance: TILIDINE
     Dosage: 50/4 MG, B.B., SUSTAINED-RELEASE TABLETS
     Route: 048
  4. MOLSIDOMINE [Concomitant]
     Active Substance: MOLSIDOMINE
     Dosage: 8 MG, 1/2-0-1/2, TABLETS
     Route: 048
  5. CALCIUM CARBONATE. [Concomitant]
     Active Substance: CALCIUM CARBONATE
     Dosage: 500 MG, 1-0-0
     Route: 048
  6. IBUPROFEN. [Concomitant]
     Active Substance: IBUPROFEN
     Dosage: 600 MG, B.B., TABLETS
     Route: 048
  7. PANTOPRAZOLE [Concomitant]
     Active Substance: PANTOPRAZOLE
     Dosage: 40 MG, 1-0-0, TABLETS
     Route: 048
  8. L-THYROXIN [Concomitant]
     Active Substance: LEVOTHYROXINE SODIUM
     Dosage: 125 UG, 1-0-0, TABLETS
     Route: 048
  9. TEBONIN [Concomitant]
     Active Substance: GINKGO
     Dosage: 0-0-1
     Route: 048
  10. ALENDRONATE SODIUM/ALENDRONIC ACID [Concomitant]
     Dosage: 70 MG, ONCE A WEEK.
  11. TORASEMIDE [Suspect]
     Active Substance: TORSEMIDE
     Indication: PRODUCT USED FOR UNKNOWN INDICATION
     Dosage: 10 MG, 1 1/2-1 1/2-0, TABLETS
     Route: 048
  12. AMLODIPINE [Concomitant]
     Active Substance: AMLODIPINE BESYLATE
     Dosage: 5 MG, 1-0-1, TABLETS
     Route: 048
  13. CITALOPRAM [Concomitant]
     Active Substance: CITALOPRAM HYDROBROMIDE
     Dosage: 20 MG, 1-0-0, TABLETS
     Route: 048
  14. VIGANTOLETTEN [Concomitant]
     Active Substance: CHOLECALCIFEROL
     Dosage: 1000 IE, 2-0-0, TABLETS
     Route: 048
  15. ANASTROZOLE. [Concomitant]
     Active Substance: ANASTROZOLE
     Dosage: 1 MG, 1-0-0, TABLETS
     Route: 048
  16. VESICARE [Concomitant]
     Active Substance: SOLIFENACIN SUCCINATE
     Dosage: 5 MG, 1-0-0
     Route: 048

REACTIONS (3)
  - Dyspnoea [Unknown]
  - Product prescribing error [Unknown]
  - Chest discomfort [Unknown]
